FAERS Safety Report 4400101-8 (Version None)
Quarter: 2004Q3

REPORT INFORMATION
  Report Type: 
  Country: None (occurrence: None)
  Receive Date: 20040716
  Receipt Date: 20040627
  Transmission Date: 20050211
  Serious: Yes (Hospitalization)
  Sender: FDA-Public Use
  Company Number: JP_031102121

PATIENT
  Age: 67 Year
  Sex: Male
  Weight: 47 kg

DRUGS (6)
  1. GEMZAR [Suspect]
     Indication: NON-SMALL CELL LUNG CANCER
     Dosage: 1500 MG/OTHER
     Route: 050
     Dates: start: 20020520, end: 20020729
  2. TAXOTERE [Concomitant]
  3. PENTAZOCINE LACTATE [Concomitant]
  4. LOXONIN (LOXOPROFEN SODIUM) [Concomitant]
  5. CYTOTEC [Concomitant]
  6. MS CONTIN [Concomitant]

REACTIONS (11)
  - C-REACTIVE PROTEIN INCREASED [None]
  - CONSTIPATION [None]
  - MALIGNANT NEOPLASM PROGRESSION [None]
  - PURULENCE [None]
  - PYREXIA [None]
  - RASH [None]
  - SMALL CELL LUNG CANCER STAGE UNSPECIFIED [None]
  - THERAPEUTIC RESPONSE DECREASED [None]
  - URETHRAL DISCHARGE [None]
  - URINARY TRACT INFECTION [None]
  - VOMITING [None]
